FAERS Safety Report 5536898-3 (Version None)
Quarter: 2007Q4

REPORT INFORMATION
  Report Type: 
  Country: None (occurrence: None)
  Receive Date: 20071207
  Receipt Date: 20071126
  Transmission Date: 20080405
  Serious: Yes (Death)
  Sender: FDA-Public Use
  Company Number: IL-NOVOPROD-269150

PATIENT

DRUGS (2)
  1. NOVOSEVEN [Suspect]
     Indication: HAEMORRHAGE
     Dosage: 7.2 MG, UNK
     Route: 042
     Dates: start: 20071101
  2. RED BLOOD CELLS [Concomitant]
     Dosage: 11 U, UNK

REACTIONS (2)
  - CARDIAC FAILURE [None]
  - HAEMORRHAGE [None]
